FAERS Safety Report 4525849-6 (Version None)
Quarter: 2004Q4

REPORT INFORMATION
  Report Type: 
  Country: None (occurrence: None)
  Receive Date: 20041124
  Receipt Date: 20040223
  Transmission Date: 20050328
  Serious: Yes (Hospitalization, Other)
  Sender: FDA-Public Use
  Company Number: 2003121349

PATIENT
  Age: 77 Year
  Sex: Female
  Weight: 79.8331 kg

DRUGS (15)
  1. TIKOSYN [Suspect]
     Indication: ATRIAL FIBRILLATION
     Dosage: 750 MCG (BID), ORAL
     Route: 048
     Dates: start: 20030729
  2. PRIMIDONE [Suspect]
     Indication: TREMOR
     Dosage: 50 MG (DAILY),
     Dates: start: 20030101, end: 20030101
  3. WARFARIN SODIUM [Suspect]
     Indication: ILL-DEFINED DISORDER
     Dosage: 2 MG (DAILY), ORAL
     Route: 048
  4. LABETALOL HCL [Suspect]
     Indication: ILL-DEFINED DISORDER
     Dosage: ORAL
     Route: 048
  5. ALENDRONATE SODIUM [Concomitant]
  6. VITAMIN B (VITAMIN B) [Concomitant]
  7. ALENDRONATE SODIUM [Concomitant]
  8. VITAMIN B (VITAMIN B) [Concomitant]
  9. CALCIUM CARBONATE (CALCIUM CARBONATE) [Concomitant]
  10. VALSARTAN (VALSARTAN) [Concomitant]
  11. SIMVASTATIN [Concomitant]
  12. METOPROLOL TARTRATE [Concomitant]
  13. LORAZEPAM [Concomitant]
  14. LOMOTIL [Concomitant]
  15. ACETAMINOPHEN [Concomitant]

REACTIONS (12)
  - ANXIETY [None]
  - ARTHRALGIA [None]
  - ATRIAL FIBRILLATION [None]
  - DIARRHOEA [None]
  - DIZZINESS [None]
  - EXTRASYSTOLES [None]
  - HYPOTENSION [None]
  - INTERNATIONAL NORMALISED RATIO INCREASED [None]
  - ORTHOSTATIC HYPOTENSION [None]
  - TOOTH EXTRACTION [None]
  - TREMOR [None]
  - VEIN DISORDER [None]
